FAERS Safety Report 5264690-6 (Version None)
Quarter: 2007Q1

REPORT INFORMATION
  Report Type: 
  Country: None (occurrence: None)
  Receive Date: 20070314
  Receipt Date: 20070312
  Transmission Date: 20070707
  Serious: Yes (Other)
  Sender: FDA-Public Use
  Company Number: JP-JNJFOC-20070301246

PATIENT
  Sex: Female
  Weight: 50 kg

DRUGS (18)
  1. REMICADE [Suspect]
     Route: 042
  2. REMICADE [Suspect]
     Route: 042
  3. REMICADE [Suspect]
     Route: 042
  4. REMICADE [Suspect]
     Route: 042
  5. REMICADE [Suspect]
     Route: 042
  6. REMICADE [Suspect]
     Route: 042
  7. REMICADE [Suspect]
     Route: 042
  8. REMICADE [Suspect]
     Indication: RHEUMATOID ARTHRITIS
     Route: 042
  9. RHEUMATREX [Suspect]
     Route: 048
  10. RHEUMATREX [Suspect]
     Indication: RHEUMATOID ARTHRITIS
     Route: 048
  11. PREDONINE [Suspect]
     Indication: RHEUMATOID ARTHRITIS
     Route: 048
  12. ISCOTIN [Concomitant]
     Indication: ANTIBIOTIC PROPHYLAXIS
     Route: 048
  13. VOLTAREN [Concomitant]
     Indication: RHEUMATOID ARTHRITIS
     Route: 048
  14. SELBEX [Concomitant]
     Route: 048
  15. PYDOXAL [Concomitant]
     Route: 048
  16. ADRENAL HORMONE PREPARATIONS [Concomitant]
     Indication: RHEUMATOID ARTHRITIS
     Route: 065
  17. FUNGIZONE [Concomitant]
     Indication: ORAL CANDIDIASIS
     Route: 048
  18. UNSPECIFIED MEDICATION [Concomitant]
     Indication: NASOPHARYNGITIS
     Route: 065

REACTIONS (1)
  - BREAST CANCER [None]
